FAERS Safety Report 5829470-9 (Version None)
Quarter: 2008Q2

REPORT INFORMATION
  Report Type: 
  Country: None (occurrence: None)
  Receive Date: 20080601
  Receipt Date: 20080219
  Transmission Date: 20081010
  Serious: No
  Sender: FDA-Public Use
  Company Number: US200802004533

PATIENT
  Age: 59 Year
  Sex: Female

DRUGS (3)
  1. BYETTA [Suspect]
     Indication: INSULIN-REQUIRING TYPE 2 DIABETES MELLITUS
     Dosage: SUBCUTANEOUS
     Route: 058
     Dates: end: 20070901
  2. NOVOLOG [Concomitant]
  3. LANTUS [Concomitant]

REACTIONS (3)
  - DECREASED APPETITE [None]
  - HUNGER [None]
  - WEIGHT INCREASED [None]
